FAERS Safety Report 6129518-0 (Version None)
Quarter: 2009Q1

REPORT INFORMATION
  Report Type: 
  Country: None (occurrence: None)
  Receive Date: 20090324
  Receipt Date: 20090312
  Transmission Date: 20090719
  Serious: Yes (Other)
  Sender: FDA-Public Use
  Company Number: PHHY2009TR09273

PATIENT
  Sex: Female

DRUGS (1)
  1. FORADIL COMBI [Suspect]

REACTIONS (2)
  - RASH [None]
  - SKIN ULCER [None]
